FAERS Safety Report 6228866-3 (Version None)
Quarter: 2009Q2

REPORT INFORMATION
  Report Type: 
  Country: None (occurrence: None)
  Receive Date: 20090615
  Receipt Date: 20090612
  Transmission Date: 20091009
  Serious: Yes (Hospitalization)
  Sender: FDA-Public Use
  Company Number: MA-ROXANE LABORATORIES, INC.-2009-RO-00579RO

PATIENT
  Age: 43 Year
  Sex: Male

DRUGS (5)
  1. CYCLOPHOSPHAMIDE [Suspect]
     Indication: BEHCET'S SYNDROME
  2. PREDNISONE [Suspect]
     Indication: BEHCET'S SYNDROME
     Route: 048
  3. FLUIDS [Suspect]
  4. HYPERTONIC SALINE [Concomitant]
     Indication: WATER INTOXICATION
     Route: 042
  5. FUROSEMIDE [Concomitant]
     Indication: WATER INTOXICATION

REACTIONS (2)
  - HYPONATRAEMIA [None]
  - WATER INTOXICATION [None]
